FAERS Safety Report 15110330 (Version 2)
Quarter: 2018Q3

REPORT INFORMATION
  Report Type: Report from Study
  Country: IN (occurrence: IN)
  Receive Date: 20180705
  Receipt Date: 20180716
  Transmission Date: 20181010
  Serious: Yes (Death, Life-Threatening, Hospitalization)
  Sender: FDA-Public Use
  Company Number: PHHO2018IN003077

PATIENT
  Age: 69 Year
  Sex: Female
  Weight: 54 kg

DRUGS (5)
  1. LETROZOLE. [Suspect]
     Active Substance: LETROZOLE
     Dosage: 2.5 MG, CONT
     Route: 048
     Dates: start: 20180124
  2. LEE011 [Suspect]
     Active Substance: RIBOCICLIB
     Indication: BREAST CANCER
     Dosage: 600 MG, CONT
     Route: 048
     Dates: start: 20180112, end: 20180119
  3. IVABRADINE [Concomitant]
     Active Substance: IVABRADINE
     Indication: HYPERTENSION
     Dosage: 5 MG, ONCE/SINGLE
     Route: 048
     Dates: start: 20180124
  4. LETROZOLE. [Suspect]
     Active Substance: LETROZOLE
     Indication: BREAST CANCER
     Dosage: 2.5 MG, QD
     Route: 048
     Dates: start: 20180112, end: 20180123
  5. OLMESARTAN [Concomitant]
     Active Substance: OLMESARTAN
     Indication: HYPERTENSION
     Dosage: 20 MG, ONCE/SINGLE
     Route: 048
     Dates: start: 20180124, end: 20180124

REACTIONS (2)
  - Nephropathy [Not Recovered/Not Resolved]
  - Haemorrhage intracranial [Fatal]

NARRATIVE: CASE EVENT DATE: 20180223
